FAERS Safety Report 5498610-6 (Version None)
Quarter: 2007Q4

REPORT INFORMATION
  Report Type: 
  Country: None (occurrence: None)
  Receive Date: 20071026
  Receipt Date: 20071016
  Transmission Date: 20080405
  Serious: Yes (Hospitalization)
  Sender: FDA-Public Use
  Company Number: US-JNJFOC-20071004242

PATIENT
  Age: 36 Year
  Sex: Female
  Weight: 56.7 kg

DRUGS (7)
  1. REMICADE [Suspect]
     Route: 042
  2. REMICADE [Suspect]
     Indication: COLITIS ULCERATIVE
     Route: 042
  3. ASACOL [Concomitant]
     Indication: COLITIS ULCERATIVE
  4. PRILOSEC [Concomitant]
  5. TRAZODONE HCL [Concomitant]
     Indication: DEPRESSION
  6. CELEXA [Concomitant]
  7. TOPAMAX [Concomitant]
     Indication: MIGRAINE PROPHYLAXIS

REACTIONS (4)
  - ABASIA [None]
  - MUSCULAR WEAKNESS [None]
  - PARAESTHESIA [None]
  - VISION BLURRED [None]
